FAERS Safety Report 14756973 (Version 1)
Quarter: 2018Q2

REPORT INFORMATION
  Report Type: Spontaneous
  Country: US (occurrence: US)
  Receive Date: 20180408
  Receipt Date: 20180408
  Transmission Date: 20180711
  Serious: Yes (Hospitalization)
  Sender: FDA-Public Use
  Company Number: None

PATIENT
  Age: 7 Year
  Sex: Female
  Weight: 16.6 kg

DRUGS (11)
  1. MERCAPTOPURINE. [Suspect]
     Active Substance: MERCAPTOPURINE
     Dates: end: 20180320
  2. CYCLOPHOSPHAMIDE. [Suspect]
     Active Substance: CYCLOPHOSPHAMIDE
     Dates: end: 20170505
  3. THIOGUANINE (6-TG) [Suspect]
     Active Substance: THIOGUANINE ANHYDROUS
     Dates: end: 20170518
  4. METHOTREXATE. [Suspect]
     Active Substance: METHOTREXATE
     Dates: end: 20180316
  5. DEXAMETHASONE. [Suspect]
     Active Substance: DEXAMETHASONE
     Dates: end: 20170420
  6. PREDNISONE. [Suspect]
     Active Substance: PREDNISONE
     Dates: end: 20180313
  7. ONCASPAR [Suspect]
     Active Substance: PEGASPARGASE
     Dates: end: 20170403
  8. LEUCOVORIN. [Concomitant]
     Active Substance: LEUCOVORIN
  9. DOXORUBICIN HYDROCHLORIDE. [Suspect]
     Active Substance: DOXORUBICIN HYDROCHLORIDE
     Dates: end: 20170414
  10. CYTARABINE. [Suspect]
     Active Substance: CYTARABINE
     Dates: end: 20170515
  11. VINCRISTINE SULFATE. [Suspect]
     Active Substance: VINCRISTINE SULFATE
     Dates: end: 20180309

REACTIONS (6)
  - Cytomegalovirus viraemia [None]
  - Hepatitis [None]
  - Tachycardia [None]
  - Hypotension [None]
  - Respiratory distress [None]
  - Pneumonia [None]

NARRATIVE: CASE EVENT DATE: 20180328
